FAERS Safety Report 9008970 (Version 1)
Quarter: 2013Q1

REPORT INFORMATION
  Report Type: Spontaneous
  Country: US (occurrence: US)
  Receive Date: 20130111
  Receipt Date: 20130111
  Transmission Date: 20140127
  Serious: No
  Sender: FDA-Public Use
  Company Number: US-PFIZER INC-2013010904

PATIENT
  Age: 57 Year
  Sex: Female

DRUGS (8)
  1. CELEBREX [Suspect]
     Dosage: 200 MG, 1X/DAY
     Route: 048
  2. LYRICA [Suspect]
     Dosage: 150 MG (QHS)
     Route: 048
  3. CALCIUM + VITAMIN D [Concomitant]
     Dosage: UNK
  4. TRICOR [Concomitant]
     Dosage: UNK
  5. CYMBALTA [Concomitant]
     Dosage: UNK
  6. ADDERALL XR [Concomitant]
     Dosage: UNK
  7. DIOVAN [Concomitant]
     Dosage: UNK
  8. LEXAPRO [Concomitant]
     Dosage: UNK

REACTIONS (2)
  - Off label use [Unknown]
  - Bronchitis [Unknown]
